FAERS Safety Report 4987672-8 (Version None)
Quarter: 2006Q2

REPORT INFORMATION
  Report Type: 
  Country: None (occurrence: None)
  Receive Date: 20060424
  Receipt Date: 20060404
  Transmission Date: 20061013
  Serious: Yes (Hospitalization, Other)
  Sender: FDA-Public Use
  Company Number: US200604000795

PATIENT
  Age: 66 Year
  Sex: Female

DRUGS (3)
  1. HUMALOG MIX 75/25 [Suspect]
     Indication: DIABETES MELLITUS
     Dosage: SEE IMAGE
     Dates: start: 19980101
  2. HUMALOG MIX 75/25 [Suspect]
  3. HUMALOG MIX (HUMALOG MIX) PEN, DISPOSABLE [Concomitant]

REACTIONS (5)
  - BENIGN CARDIAC NEOPLASM [None]
  - BLINDNESS [None]
  - BLOOD PRESSURE DECREASED [None]
  - OPTIC ISCHAEMIC NEUROPATHY [None]
  - PROCEDURAL COMPLICATION [None]
